FAERS Safety Report 5094959-X (Version None)
Quarter: 2006Q3

REPORT INFORMATION
  Report Type: 
  Country: None (occurrence: None)
  Receive Date: 20060901
  Receipt Date: 20060825
  Transmission Date: 20061208
  Serious: Yes (Death)
  Sender: FDA-Public Use
  Company Number: US-JNJFOC-20051201464

PATIENT
  Sex: Female
  Weight: 72.4 kg

DRUGS (15)
  1. DURAGESIC-100 [Suspect]
     Route: 062
     Dates: start: 20031211
  2. DURAGESIC-100 [Suspect]
     Indication: HEADACHE
     Dosage: TO BACK
     Route: 062
     Dates: start: 20031211
  3. FENTANYL CITRATE [Suspect]
     Indication: HEADACHE
     Route: 042
  4. FENTANYL CITRATE [Suspect]
     Indication: PAIN
     Route: 042
  5. IV FLUIDS [Concomitant]
     Dosage: 2 LITERS OF IV FLUIDS
     Route: 042
     Dates: start: 20031212, end: 20031212
  6. ZOFRAN [Concomitant]
  7. NS [Concomitant]
     Dosage: 1000 CC, 2 TIMES
     Route: 042
     Dates: start: 20031212, end: 20031212
  8. BENADRYL [Concomitant]
     Dosage: 25 CC, 1 TIME
     Dates: start: 20031212, end: 20031212
  9. ALLEGRA-D 12 HOUR [Concomitant]
  10. CELEBREX [Concomitant]
  11. LEXAPRO [Concomitant]
  12. EFFEXOR [Concomitant]
  13. ELMIRON [Concomitant]
  14. ADRENAL SUPPORT [Concomitant]
     Indication: NUTRITIONAL SUPPORT
  15. SUDAFED 12 HOUR [Concomitant]

REACTIONS (6)
  - ACCIDENTAL DEATH [None]
  - DRUG TOXICITY [None]
  - NAUSEA [None]
  - PULMONARY CONGESTION [None]
  - PULMONARY OEDEMA [None]
  - VOMITING [None]
